FAERS Safety Report 4578584-2 (Version None)
Quarter: 2005Q1

REPORT INFORMATION
  Report Type: 
  Country: None (occurrence: None)
  Receive Date: 20050207
  Receipt Date: 20050207
  Transmission Date: 20050727
  Serious: Yes (Death)
  Sender: FDA-Public Use
  Company Number: None

PATIENT
  Age: 46 Year
  Sex: Female
  Weight: 62.1428 kg

DRUGS (2)
  1. METHADONE 10 MG [Suspect]
     Dosage: 6 TIMES A DAY
     Dates: start: 20041024, end: 20041110
  2. ZOLOFT [Suspect]
     Dosage: 1 TIME A DAY
     Dates: start: 20041012, end: 20041110

REACTIONS (11)
  - ACCIDENT AT WORK [None]
  - ACCIDENTAL OVERDOSE [None]
  - BACK DISORDER [None]
  - BACK INJURY [None]
  - DEPRESSION [None]
  - INCOHERENT [None]
  - MEDICATION ERROR [None]
  - MEMORY IMPAIRMENT [None]
  - ROAD TRAFFIC ACCIDENT [None]
  - SHOULDER OPERATION [None]
  - SURGERY [None]
